FAERS Safety Report 8014887-7 (Version None)
Quarter: 2011Q4

REPORT INFORMATION
  Report Type: 
  Country: None (occurrence: None)
  Receive Date: 20111229
  Receipt Date: 20111228
  Transmission Date: 20120403
  Serious: No
  Sender: FDA-Public Use
  Company Number: US-PFIZER INC-2011314870

PATIENT

DRUGS (1)
  1. PRISTIQ [Suspect]
     Dosage: UNK

REACTIONS (5)
  - PRURITUS [None]
  - URTICARIA [None]
  - ABNORMAL DREAMS [None]
  - SWELLING [None]
  - ERYTHEMA [None]
